FAERS Safety Report 15855846 (Version 1)
Quarter: 2019Q1

REPORT INFORMATION
  Report Type: Spontaneous
  Country: None (occurrence: US)
  Receive Date: 20190122
  Receipt Date: 20190122
  Transmission Date: 20190417
  Serious: Yes (Congenital Anomaly, Other)
  Sender: FDA-Public Use
  Company Number: US-POPULATION COUNCIL, INC.-2061591

PATIENT
  Sex: Female

DRUGS (1)
  1. NORPLANT [Suspect]
     Active Substance: LEVONORGESTREL
     Indication: CONTRACEPTION

REACTIONS (4)
  - Deafness [Unknown]
  - Premature baby [Recovered/Resolved]
  - Duodenal atresia [Unknown]
  - Cleft palate [Unknown]

NARRATIVE: CASE EVENT DATE: 20020304
